FAERS Safety Report 9970010 (Version 4)
Quarter: 2015Q1

REPORT INFORMATION
  Report Type: Spontaneous
  Country: FR (occurrence: FR)
  Receive Date: 20140306
  Receipt Date: 20150209
  Transmission Date: 20150721
  Serious: Yes (Hospitalization, Other)
  Sender: FDA-Public Use
  Company Number: FR-ELI_LILLY_AND_COMPANY-FR201402009239

PATIENT
  Age: 14 Year
  Sex: Male

DRUGS (4)
  1. ZYPREXA [Suspect]
     Active Substance: OLANZAPINE
     Indication: GENERAL PHYSICAL HEALTH DETERIORATION
  2. ZYPREXA [Suspect]
     Active Substance: OLANZAPINE
     Indication: SUICIDE ATTEMPT
  3. ABILIFY [Suspect]
     Active Substance: ARIPIPRAZOLE
     Indication: MENTAL DISORDER
     Dosage: UNK UNK, UNKNOWN
     Route: 048
     Dates: start: 201304, end: 201310
  4. ZYPREXA [Suspect]
     Active Substance: OLANZAPINE
     Indication: MENTAL DISORDER
     Dosage: 10 MG, UNKNOWN
     Route: 048
     Dates: start: 201210

REACTIONS (11)
  - Pallor [Unknown]
  - Nausea [Unknown]
  - Fatigue [Unknown]
  - Off label use [Recovered/Resolved]
  - Acute myeloid leukaemia [Not Recovered/Not Resolved]
  - Weight decreased [Unknown]
  - Lymphopenia [Unknown]
  - Vomiting [Unknown]
  - Weight increased [Unknown]
  - Bicytopenia [Not Recovered/Not Resolved]
  - Syncope [Unknown]

NARRATIVE: CASE EVENT DATE: 201310
